FAERS Safety Report 4756927-4 (Version None)
Quarter: 2005Q3

REPORT INFORMATION
  Report Type: 
  Country: None (occurrence: None)
  Receive Date: 20050830
  Receipt Date: 20050309
  Transmission Date: 20060218
  Serious: Yes (Hospitalization, Disabling)
  Sender: FDA-Public Use
  Company Number: US-MERCK-0503USA01713

PATIENT
  Age: 50 Year
  Sex: Male
  Weight: 71 kg

DRUGS (12)
  1. VIOXX [Suspect]
     Indication: JOINT STIFFNESS
     Route: 048
     Dates: start: 20020601, end: 20020101
  2. VIOXX [Suspect]
     Route: 048
     Dates: start: 20020101, end: 20031228
  3. VIOXX [Suspect]
     Indication: PAIN IN EXTREMITY
     Route: 048
     Dates: start: 20020601, end: 20020101
  4. VIOXX [Suspect]
     Route: 048
     Dates: start: 20020101, end: 20031228
  5. REBETOL [Concomitant]
     Indication: HEPATITIS B
     Route: 065
  6. REBETOL [Concomitant]
     Indication: HEPATITIS C
     Route: 065
  7. MOBIC [Concomitant]
     Route: 065
  8. PERCOCET [Concomitant]
     Route: 065
     Dates: start: 20020801
  9. REBETRON [Concomitant]
     Indication: HEPATITIS C
     Route: 065
     Dates: start: 19980101
  10. REBETRON [Concomitant]
     Indication: HEPATITIS B
     Route: 065
     Dates: start: 19980101
  11. INTERFERON (UNSPECIFIED) [Concomitant]
     Indication: HEPATITIS C
     Route: 065
  12. INTERFERON (UNSPECIFIED) [Concomitant]
     Indication: HEPATITIS B
     Route: 065

REACTIONS (13)
  - ANHEDONIA [None]
  - ANOXIC ENCEPHALOPATHY [None]
  - CEREBROVASCULAR ACCIDENT [None]
  - CONVULSION [None]
  - DEEP VEIN THROMBOSIS [None]
  - DEPRESSION [None]
  - DYSPEPSIA [None]
  - FEMUR FRACTURE [None]
  - HEART RATE DECREASED [None]
  - HEART RATE IRREGULAR [None]
  - NECK PAIN [None]
  - PAIN [None]
  - SYNCOPE [None]
